FAERS Safety Report 7908057-8 (Version None)
Quarter: 2011Q4

REPORT INFORMATION
  Report Type: 
  Country: None (occurrence: None)
  Receive Date: 20111111
  Receipt Date: 20111101
  Transmission Date: 20120403
  Serious: Yes (Other)
  Sender: FDA-Public Use
  Company Number: IN-PAR PHARMACEUTICAL, INC-2011SCPR003396

PATIENT

DRUGS (5)
  1. CABERGOLINE [Suspect]
     Dosage: 2 MG, PER WEEK
     Route: 065
  2. CABERGOLINE [Suspect]
     Indication: PROLACTINOMA
     Dosage: 1 MG, PER WEEK
     Route: 065
  3. LEVOTHYROXINE SODIUM [Concomitant]
     Indication: THYROXINE DECREASED
     Dosage: UNK, UNKNOWN
     Route: 065
  4. CABERGOLINE [Suspect]
     Dosage: 3 MG, EVERY WEEK
     Route: 065
  5. TESTOSTERONE [Concomitant]
     Indication: BLOOD TESTOSTERONE DECREASED
     Dosage: UNK, UNKNOWN
     Route: 065

REACTIONS (2)
  - BRAIN HERNIATION [None]
  - VISUAL PATHWAY DISORDER [None]
